FAERS Safety Report 8765563 (Version 2)
Quarter: 2012Q4

REPORT INFORMATION
  Report Type: 
  Country: AR (occurrence: AR)
  Receive Date: 20120903
  Receipt Date: 20120920
  Transmission Date: 20130627
  Serious: Yes (Other)
  Sender: FDA-Public Use
  Company Number: PHHY2012AR075652

PATIENT
  Sex: Female

DRUGS (1)
  1. EXFORGE D [Suspect]
     Indication: HYPERTENSION
     Dosage: 1 DF, daily (320/10/25 mg)
     Dates: start: 20120728

REACTIONS (3)
  - Phlebitis [Recovered/Resolved]
  - Oedema peripheral [Recovered/Resolved]
  - Feeling abnormal [Recovered/Resolved]
